FAERS Safety Report 21876466 (Version 2)
Quarter: 2023Q1

REPORT INFORMATION
  Report Type: Spontaneous
  Country: CN (occurrence: CN)
  Receive Date: 20230118
  Receipt Date: 20230120
  Transmission Date: 20230418
  Serious: Yes (Hospitalization)
  Sender: FDA-Public Use
  Company Number: CN-PFIZER INC-PV202300009787

PATIENT
  Age: 50 Year
  Sex: Female
  Weight: 65 kg

DRUGS (2)
  1. MEROPENEM [Suspect]
     Active Substance: MEROPENEM
     Indication: Infection
     Dosage: 2 G, 3X/DAY, 2G[TID]
     Route: 037
     Dates: start: 20221120, end: 20221227
  2. SODIUM CHLORIDE [Concomitant]
     Active Substance: SODIUM CHLORIDE
     Dosage: 250 ML, 3X/DAY (250ML,TID)
     Route: 037
     Dates: start: 20221120, end: 20221227

REACTIONS (1)
  - Pneumonia fungal [Recovering/Resolving]

NARRATIVE: CASE EVENT DATE: 20221226
